FAERS Safety Report 8423183-5 (Version None)
Quarter: 2012Q2

REPORT INFORMATION
  Report Type: 
  Country: None (occurrence: None)
  Receive Date: 20120608
  Receipt Date: 20120606
  Transmission Date: 20120825
  Serious: No
  Sender: FDA-Public Use
  Company Number: US-PFIZER INC-2012137257

PATIENT
  Sex: Female

DRUGS (1)
  1. LYRICA [Suspect]
     Dosage: UNK
     Dates: end: 20120101

REACTIONS (5)
  - IRRITABILITY [None]
  - FATIGUE [None]
  - PAIN [None]
  - WITHDRAWAL SYNDROME [None]
  - FRUSTRATION [None]
